FAERS Safety Report 6273419-4 (Version None)
Quarter: 2009Q3

REPORT INFORMATION
  Report Type: 
  Country: None (occurrence: None)
  Receive Date: 20090720
  Receipt Date: 20090708
  Transmission Date: 20100115
  Serious: Yes (Hospitalization)
  Sender: FDA-Public Use
  Company Number: PHBS2005ZA15891

PATIENT
  Sex: Female
  Weight: 75 kg

DRUGS (3)
  1. ZOMETA [Suspect]
     Indication: OSTEOPOROSIS
     Dosage: 1 DF, QMO
     Route: 042
     Dates: start: 20050701
  2. ELTROXIN [Concomitant]
     Dosage: 1.5 MG/D
     Route: 065
  3. ELTROXIN [Concomitant]
     Dosage: 1 MG, UNK
     Dates: start: 20070101

REACTIONS (13)
  - ABDOMINAL PAIN LOWER [None]
  - BACK PAIN [None]
  - BONE PAIN [None]
  - BREAST CYST [None]
  - BREAST MASS [None]
  - EAR PAIN [None]
  - INSOMNIA [None]
  - MALAISE [None]
  - MUSCULOSKELETAL CHEST PAIN [None]
  - MUSCULOSKELETAL PAIN [None]
  - OVERDOSE [None]
  - PAIN IN EXTREMITY [None]
  - PAIN IN JAW [None]
